FAERS Safety Report 16681518 (Version 2)
Quarter: 2019Q3

REPORT INFORMATION
  Report Type: Spontaneous
  Country: FR (occurrence: FR)
  Receive Date: 20190808
  Receipt Date: 20190917
  Transmission Date: 20191004
  Serious: Yes (Hospitalization)
  Sender: FDA-Public Use
  Company Number: FR-AUROBINDO-AUR-APL-2019-044944

PATIENT
  Age: 65 Year
  Sex: Male
  Weight: 80.5 kg

DRUGS (3)
  1. PIPERACILLINE / TAZOBACTAM MYLAN [Suspect]
     Active Substance: PIPERACILLIN SODIUM\TAZOBACTAM SODIUM
     Indication: BACTERIAL INFECTION
     Dosage: 3 DOSAGE FORM, DAILY
     Route: 042
     Dates: start: 20190708, end: 20190710
  2. FLUCONAZOLE ARROW? 200 MG CAPSULE [Suspect]
     Active Substance: FLUCONAZOLE
     Indication: FUNGAL INFECTION
     Dosage: 2 DOSAGE FORM, DAILY (2 TABLETS IN THE MORNING)
     Route: 048
     Dates: start: 20190709
  3. OXYCODONE MYLAN [Suspect]
     Active Substance: OXYCODONE
     Indication: ANALGESIC INTERVENTION SUPPORTIVE THERAPY
     Dosage: 2 DOSAGE FORM, DAILY (1 MORNING, 1 EVENING)
     Route: 048
     Dates: start: 20190701, end: 20190710

REACTIONS (1)
  - Hallucination [Recovered/Resolved]

NARRATIVE: CASE EVENT DATE: 20190709
